FAERS Safety Report 4706914-7 (Version None)
Quarter: 2005Q2

REPORT INFORMATION
  Report Type: 
  Country: None (occurrence: None)
  Receive Date: 20050630
  Receipt Date: 20050620
  Transmission Date: 20051028
  Serious: Yes (Death)
  Sender: FDA-Public Use
  Company Number: 2005-DE-02347GD

PATIENT
  Sex: 0

DRUGS (6)
  1. CODEINE SUL TAB [Suspect]
  2. DIAZEPAM [Suspect]
  3. COCAINE (COCAINE) [Suspect]
  4. OXYCODONE (OXYCODONE) [Suspect]
  5. HYDROCODONE (HYDROCODONE) [Suspect]
  6. GAMMAHYDROXYBUTYRATE [Suspect]

REACTIONS (2)
  - DRUG TOXICITY [None]
  - POLYSUBSTANCE ABUSE [None]
